FAERS Safety Report 24450526 (Version 1)
Quarter: 2024Q4

REPORT INFORMATION
  Report Type: Spontaneous
  Country: US (occurrence: None)
  Receive Date: 20241017
  Receipt Date: 20241017
  Transmission Date: 20250115
  Serious: Yes (Hospitalization)
  Sender: Public
  Company Number: None

PATIENT
  Age: 80 Year
  Sex: Male
  Weight: 62.32 kg

DRUGS (2)
  1. CARBOPLATIN [Suspect]
     Active Substance: CARBOPLATIN
     Dates: end: 20241002
  2. TAXOL [Suspect]
     Active Substance: PACLITAXEL
     Dates: end: 20240502

REACTIONS (4)
  - Rectal haemorrhage [None]
  - Anal ulcer [None]
  - Haematochezia [None]
  - Radiation proctitis [None]

NARRATIVE: CASE EVENT DATE: 20241008
